FAERS Safety Report 5098901-7 (Version None)
Quarter: 2006Q3

REPORT INFORMATION
  Report Type: 
  Country: None (occurrence: None)
  Receive Date: 20060907
  Receipt Date: 20060420
  Transmission Date: 20061208
  Serious: Yes (Other)
  Sender: FDA-Public Use
  Company Number: PHBS2006JP06023

PATIENT
  Age: 57 Year
  Sex: Male

DRUGS (10)
  1. LIORESAL [Suspect]
     Indication: PAIN IN EXTREMITY
     Dosage: 15 MG/DAY
     Route: 048
     Dates: start: 20060417, end: 20060419
  2. TRYPTANOL [Concomitant]
     Dosage: 30 MG, UNK
     Route: 048
     Dates: start: 20060413
  3. HALCION [Concomitant]
     Dosage: 0.125 MG, UNK
     Route: 048
     Dates: start: 20060410
  4. COVERSYL [Concomitant]
     Dosage: 4 MG, UNK
     Route: 048
  5. GLORIAMIN [Concomitant]
     Dosage: 2 G, UNK
     Route: 048
  6. PROTECADIN [Concomitant]
     Dosage: 10 MG, UNK
     Route: 048
  7. NORVASC [Concomitant]
     Dosage: 5 MG, UNK
     Route: 048
  8. MICARDIS [Concomitant]
     Dosage: 80 MG, UNK
     Route: 048
  9. WYTENS [Concomitant]
     Dosage: 2 MG, UNK
     Route: 048
  10. LASIX [Concomitant]
     Dosage: 40 MG, UNK
     Route: 048

REACTIONS (5)
  - BLOOD CREATININE INCREASED [None]
  - BLOOD POTASSIUM INCREASED [None]
  - BLOOD UREA INCREASED [None]
  - DEPRESSED LEVEL OF CONSCIOUSNESS [None]
  - DISORIENTATION [None]
